FAERS Safety Report 13435364 (Version 1)
Quarter: 2017Q2

REPORT INFORMATION
  Report Type: Spontaneous
  Country: JP (occurrence: JP)
  Receive Date: 20170413
  Receipt Date: 20170413
  Transmission Date: 20170830
  Serious: Yes (Hospitalization)
  Sender: FDA-Public Use
  Company Number: JP-BIOCRYST PHARMACEUTICALS, INC.-2017BCR00137

PATIENT
  Age: 89 Year
  Sex: Female

DRUGS (4)
  1. RAPIACTA [Suspect]
     Active Substance: PERAMIVIR
     Indication: INFLUENZA
     Dosage: UNK
     Route: 042
     Dates: start: 20170302, end: 20170302
  2. CLINDAMYCIN PHOSPHATE. [Concomitant]
     Active Substance: CLINDAMYCIN PHOSPHATE
     Indication: PNEUMONIA BACTERIAL
     Dosage: 1200 MG, 1X/DAY
     Route: 042
     Dates: start: 20170302, end: 20170309
  3. METHYLPREDNISOLONE SODIUM SUCCINATE. [Concomitant]
     Active Substance: METHYLPREDNISOLONE SODIUM SUCCINATE
     Indication: PNEUMONIA BACTERIAL
     Dosage: 250 MG, 1X/DAY
     Route: 042
     Dates: start: 20170302, end: 20170304
  4. IMIPENEM_CILASTATIN [Concomitant]
     Indication: PNEUMONIA BACTERIAL
     Dosage: 1 MG, 1X/DAY
     Route: 042
     Dates: start: 20170302, end: 20170309

REACTIONS (2)
  - Blood sodium increased [Recovered/Resolved]
  - Blood chloride increased [Recovered/Resolved]

NARRATIVE: CASE EVENT DATE: 20170302
